FAERS Safety Report 25543957 (Version 1)
Quarter: 2025Q3

REPORT INFORMATION
  Report Type: Spontaneous
  Country: US (occurrence: None)
  Receive Date: 20250711
  Receipt Date: 20250711
  Transmission Date: 20251020
  Serious: Yes (Hospitalization)
  Sender: FDA-CTU
  Company Number: None

PATIENT
  Age: 30 Year
  Sex: Female
  Weight: 95.7 kg

DRUGS (8)
  1. CYCLOPHOSPHAMIDE [Suspect]
     Active Substance: CYCLOPHOSPHAMIDE
  2. CYTARABINE [Suspect]
     Active Substance: CYTARABINE
  3. DEXAMETHASONE [Suspect]
     Active Substance: DEXAMETHASONE
  4. DOXORUBICIN HYDROCHLORIDE [Suspect]
     Active Substance: DOXORUBICIN HYDROCHLORIDE
  5. METHOTREXATE [Suspect]
     Active Substance: METHOTREXATE
  6. PONATINIB [Suspect]
     Active Substance: PONATINIB
  7. PREDNISONE [Suspect]
     Active Substance: PREDNISONE
  8. VINCRISTINE SULFATE [Suspect]
     Active Substance: VINCRISTINE SULFATE

REACTIONS (5)
  - Chest pain [None]
  - Dyspnoea [None]
  - Pyrexia [None]
  - Cough [None]
  - Pulmonary embolism [None]

NARRATIVE: CASE EVENT DATE: 20250627
